FAERS Safety Report 6932610-1 (Version None)
Quarter: 2010Q3

REPORT INFORMATION
  Report Type: 
  Country: None (occurrence: None)
  Receive Date: 20100819
  Receipt Date: 20100810
  Transmission Date: 20110219
  Serious: Yes (Hospitalization, Other)
  Sender: FDA-Public Use
  Company Number: US-JNJFOC-20100504667

PATIENT
  Sex: Male

DRUGS (8)
  1. CHILDREN'S TYLENOL SUSPENSION [Suspect]
     Indication: OROPHARYNGEAL PAIN
     Route: 048
  2. CHILDREN'S TYLENOL SUSPENSION [Suspect]
     Indication: COUGH
     Route: 048
  3. CHILDREN'S TYLENOL SUSPENSION [Suspect]
     Indication: PYREXIA
     Route: 048
  4. CHILDREN'S MOTRIN [Suspect]
  5. CHILDREN'S MOTRIN [Suspect]
     Indication: PRODUCT USED FOR UNKNOWN INDICATION
  6. CONCENTRATED TYLENOL INFANT DROPS [Suspect]
     Route: 048
  7. CONCENTRATED TYLENOL INFANT DROPS [Suspect]
     Indication: PYREXIA
     Route: 048
  8. PROGRAF [Concomitant]
     Indication: IMMUNOSUPPRESSION

REACTIONS (9)
  - ABDOMINAL DISCOMFORT [None]
  - CROUP INFECTIOUS [None]
  - HYPERHIDROSIS [None]
  - INTENTIONAL DRUG MISUSE [None]
  - MALAISE [None]
  - OROPHARYNGEAL PAIN [None]
  - PYREXIA [None]
  - RESTLESSNESS [None]
  - TRANSMISSION OF AN INFECTIOUS AGENT VIA A MEDICINAL PRODUCT [None]
